FAERS Safety Report 8517430 (Version 2)
Quarter: 2013Q3

REPORT INFORMATION
  Report Type: Report from Study
  Country: FR (occurrence: FR)
  Receive Date: 20120417
  Receipt Date: 20130711
  Transmission Date: 20140515
  Serious: Yes (Death)
  Sender: FDA-Public Use
  Company Number: FR-ROCHE-1059074

PATIENT
  Age: 65 Year
  Sex: Male

DRUGS (1)
  1. BEVACIZUMAB [Suspect]
     Indication: COLON CANCER
     Route: 065
     Dates: start: 20090304

REACTIONS (1)
  - Disease progression [Fatal]
